FAERS Safety Report 19683807 (Version 2)
Quarter: 2021Q3

REPORT INFORMATION
  Report Type: Report from Study
  Country: CO (occurrence: CO)
  Receive Date: 20210811
  Receipt Date: 20210825
  Transmission Date: 20211014
  Serious: Yes (Death, Hospitalization, Other)
  Sender: FDA-Public Use
  Company Number: CO-IPSEN BIOPHARMACEUTICALS, INC.-2021-19530

PATIENT
  Age: 65 Year
  Sex: Female

DRUGS (6)
  1. SOMATULINE AUTOGEL [Suspect]
     Active Substance: LANREOTIDE ACETATE
     Indication: NEUROENDOCRINE TUMOUR
     Dosage: 120 MG, QM
     Route: 058
     Dates: start: 20180216
  2. LEVOTHYROXINE. [Concomitant]
     Active Substance: LEVOTHYROXINE
     Dosage: 250 UG, QD
     Route: 065
  3. PARACETAMOL [Concomitant]
     Active Substance: ACETAMINOPHEN
     Indication: PAIN
     Route: 065
  4. SORAFENIB [Concomitant]
     Active Substance: SORAFENIB
     Dosage: UNK
     Route: 065
     Dates: end: 202010
  5. DEFLAZACORT [Concomitant]
     Active Substance: DEFLAZACORT
     Dosage: 6 MG, QD
     Route: 065
  6. ZOLEDRONIC ACID [Concomitant]
     Active Substance: ZOLEDRONIC ACID
     Dosage: UNK
     Route: 065
     Dates: end: 202010

REACTIONS (3)
  - Post procedural haemorrhage [Unknown]
  - General physical health deterioration [Fatal]
  - Cardio-respiratory arrest [Fatal]

NARRATIVE: CASE EVENT DATE: 20210714
